FAERS Safety Report 6464899-X (Version None)
Quarter: 2009Q4

REPORT INFORMATION
  Report Type: 
  Country: None (occurrence: None)
  Receive Date: 20091201
  Receipt Date: 20091118
  Transmission Date: 20100525
  Serious: Yes (Other)
  Sender: FDA-Public Use
  Company Number: B0594160A

PATIENT
  Sex: Female

DRUGS (17)
  1. REQUIP XL [Suspect]
     Indication: PARKINSON'S DISEASE
     Dosage: 2MG PER DAY
     Route: 048
     Dates: start: 20080101
  2. MADOPAR [Concomitant]
     Dosage: 125MG TWICE PER DAY
  3. CITALOPRAM HYDROBROMIDE [Concomitant]
     Dosage: 29MG AT NIGHT
  4. MIRTAZAPINE [Concomitant]
     Dosage: 45MG AT NIGHT
  5. LEVOTHYROXINE [Concomitant]
     Dosage: 50MCG IN THE MORNING
  6. FLUDROCORTISONE [Concomitant]
     Dosage: 100MCG TWICE PER DAY
  7. AMITRIPTYLINE [Concomitant]
     Dosage: 10MG AT NIGHT
  8. NITROFURANTOIN [Concomitant]
     Dosage: 100MG AT NIGHT
  9. NULYTELY [Concomitant]
  10. COLPERMIN [Concomitant]
  11. CALCIUM CARBONATE [Concomitant]
  12. SENNA [Concomitant]
     Dosage: 7.5MG AS DIRECTED
  13. CO Q10 [Concomitant]
  14. DIAZEPAM [Concomitant]
     Dosage: 5MG AS REQUIRED
  15. CALA-GEN [Concomitant]
     Dosage: 90ML PER DAY
  16. EYE DROPS [Concomitant]
     Route: 047
  17. BIMATOPROST [Concomitant]

REACTIONS (13)
  - BRADYKINESIA [None]
  - CONSTIPATION [None]
  - DEPRESSED LEVEL OF CONSCIOUSNESS [None]
  - FAECALOMA [None]
  - GAIT DISTURBANCE [None]
  - IMMOBILE [None]
  - JOINT CONTRACTURE [None]
  - MOVEMENT DISORDER [None]
  - MUSCULAR WEAKNESS [None]
  - NERVOUSNESS [None]
  - PARKINSON'S DISEASE [None]
  - PARKINSONIAN GAIT [None]
  - TREMOR [None]
